FAERS Safety Report 8610036-2 (Version None)
Quarter: 2012Q3

REPORT INFORMATION
  Report Type: 
  Country: None (occurrence: None)
  Receive Date: 20120822
  Receipt Date: 20120815
  Transmission Date: 20120928
  Serious: Yes (Hospitalization)
  Sender: FDA-Public Use
  Company Number: GB-AMGEN-GBRSP2012052367

PATIENT
  Age: 44 Year
  Sex: Male

DRUGS (4)
  1. MESALAMINE [Concomitant]
     Dosage: UNK
  2. OMEPRAZOLE [Concomitant]
     Dosage: UNK
  3. ACETYLSALICYLIC ACID SRT [Concomitant]
     Dosage: UNK
  4. ETANERCEPT [Suspect]
     Indication: PSORIASIS
     Dosage: UNK
     Route: 048
     Dates: start: 20080101

REACTIONS (2)
  - PULMONARY EMBOLISM [None]
  - ANTIPHOSPHOLIPID SYNDROME [None]
